FAERS Safety Report 4396201-1 (Version None)
Quarter: 2004Q3

REPORT INFORMATION
  Report Type: 
  Country: None (occurrence: None)
  Receive Date: 20040709
  Receipt Date: 20040628
  Transmission Date: 20050211
  Serious: Yes (Hospitalization)
  Sender: FDA-Public Use
  Company Number: 04P-163-0264946-00

PATIENT
  Age: 71 Year
  Sex: Female
  Weight: 80.7403 kg

DRUGS (4)
  1. HUMIRA [Suspect]
     Indication: RHEUMATOID ARTHRITIS
     Dosage: 40 MG, 1 IN 2 WK, SUBCUTANEOUS
     Route: 058
     Dates: start: 20040511, end: 20040611
  2. PREDNISONE [Concomitant]
  3. ACETAMINOPHEN [Concomitant]
  4. MULTIVITAMIN [Concomitant]

REACTIONS (2)
  - ANIMAL BITE [None]
  - SKIN INFECTION [None]
